FAERS Safety Report 6707621-1 (Version None)
Quarter: 2010Q2

REPORT INFORMATION
  Report Type: 
  Country: None (occurrence: None)
  Receive Date: 20100503
  Receipt Date: 20090803
  Transmission Date: 20101027
  Serious: No
  Sender: FDA-Public Use
  Company Number: US-ASTRAZENECA-2009SE06762

PATIENT
  Age: 748 Month
  Sex: Female
  Weight: 56.7 kg

DRUGS (7)
  1. NEXIUM [Suspect]
     Indication: GASTROOESOPHAGEAL REFLUX DISEASE
     Route: 048
     Dates: start: 20080801
  2. BONIVA [Concomitant]
  3. M.V.I. [Concomitant]
  4. LOVAZA [Concomitant]
  5. VIT C [Concomitant]
  6. ZOLOFT [Concomitant]
     Indication: DEPRESSION
  7. WELLBUTRIN [Concomitant]
     Indication: DEPRESSION

REACTIONS (1)
  - TRICHORRHEXIS [None]
